FAERS Safety Report 19067876 (Version 1)
Quarter: 2021Q1

REPORT INFORMATION
  Report Type: Spontaneous
  Country: US (occurrence: US)
  Receive Date: 20210326
  Receipt Date: 20210326
  Transmission Date: 20210420
  Serious: No
  Sender: FDA-Public Use
  Company Number: None

PATIENT
  Age: 27 Year
  Sex: Male

DRUGS (2)
  1. ETESEVIMAB. [Suspect]
     Active Substance: ETESEVIMAB
  2. BAMLANIVIMAB. [Suspect]
     Active Substance: BAMLANIVIMAB
     Indication: COVID-19
     Dosage: ?          OTHER FREQUENCY:ONCE;?
     Route: 042
     Dates: start: 20210324, end: 20210324

REACTIONS (7)
  - Head discomfort [None]
  - Dyspnoea [None]
  - Discomfort [None]
  - Infusion related reaction [None]
  - Throat tightness [None]
  - Chest discomfort [None]
  - Heart rate increased [None]

NARRATIVE: CASE EVENT DATE: 20210325
